FAERS Safety Report 6307477-5 (Version None)
Quarter: 2009Q3

REPORT INFORMATION
  Report Type: 
  Country: None (occurrence: None)
  Receive Date: 20090813
  Receipt Date: 20090806
  Transmission Date: 20100115
  Serious: Yes (Hospitalization, Other)
  Sender: FDA-Public Use
  Company Number: JP-BRISTOL-MYERS SQUIBB COMPANY-14672364

PATIENT
  Age: 68 Year
  Sex: Female
  Weight: 47 kg

DRUGS (11)
  1. SPRYCEL [Suspect]
     Indication: ACUTE LYMPHOCYTIC LEUKAEMIA
     Dosage: 21APR09-17MAY09 50MG BID,18MAY09 TO ONGOING 70MG BID.
     Route: 048
     Dates: start: 20090421
  2. POLYMYXIN-B-SULFATE [Concomitant]
     Indication: INFECTION PROPHYLAXIS
     Dosage: 1DOSAGEFORM=3TABS
     Route: 048
  3. BIFIDOBACTERIUM BIFIDUM [Concomitant]
     Dosage: FORMULATION=GRAN
     Route: 048
  4. MOSAPRIDE CITRATE [Concomitant]
     Indication: GASTRITIS
     Dosage: HYDRATE
     Route: 048
  5. MECOBALAMIN [Concomitant]
     Indication: NEUROPATHY PERIPHERAL
     Route: 048
  6. OMEPRAZOLE [Concomitant]
     Indication: OESOPHAGITIS
     Dosage: TABS
     Route: 048
  7. VALSARTAN [Concomitant]
     Indication: HYPERTENSION
     Dosage: TABS
     Route: 048
  8. PROPRANOLOL HCL [Concomitant]
     Indication: HYPERTENSION
     Dosage: TABS
     Route: 048
  9. SENNOSIDE A+B [Concomitant]
     Indication: CONSTIPATION
     Dosage: TABS
     Route: 048
  10. POTASSIUM CHLORIDE [Concomitant]
     Indication: HYPOKALAEMIA
     Dosage: TABS
     Route: 048
  11. ALLOPURINOL [Concomitant]
     Indication: HYPERLIPIDAEMIA
     Dosage: TABS
     Route: 048

REACTIONS (5)
  - DECREASED APPETITE [None]
  - DEHYDRATION [None]
  - DIARRHOEA [None]
  - NAUSEA [None]
  - PLATELET COUNT DECREASED [None]
